FAERS Safety Report 9458586 (Version 1)
Quarter: 2013Q3

REPORT INFORMATION
  Report Type: Spontaneous
  Country: US (occurrence: None)
  Receive Date: 20130813
  Receipt Date: 20130813
  Transmission Date: 20140515
  Serious: Yes (Other)
  Sender: FDA-Public Use
  Company Number: None

PATIENT
  Sex: Female
  Weight: 69.1 kg

DRUGS (1)
  1. PEGASYS [Suspect]
     Indication: HEPATITIS C
     Dosage: 180MCG  EVERY WEEK  SUBCUTANEOUSLY
     Route: 058
     Dates: start: 20130709

REACTIONS (3)
  - Lung disorder [None]
  - Wheezing [None]
  - Chest discomfort [None]
